FAERS Safety Report 6871853-2 (Version None)
Quarter: 2010Q3

REPORT INFORMATION
  Report Type: 
  Country: None (occurrence: None)
  Receive Date: 20100723
  Receipt Date: 20100719
  Transmission Date: 20110219
  Serious: Yes (Hospitalization)
  Sender: FDA-Public Use
  Company Number: FR-BRISTOL-MYERS SQUIBB COMPANY-15201809

PATIENT
  Age: 51 Year
  Sex: Male

DRUGS (7)
  1. PRAVIGARD PAC (COPACKAGED) [Suspect]
  2. SECTRAL [Suspect]
  3. PERINDOPRIL ERBUMINE [Suspect]
  4. SOLUPRED [Suspect]
     Dates: start: 20090101
  5. OFLOXACIN [Suspect]
     Dates: start: 20090101
  6. ROVAMYCINE [Suspect]
     Dates: start: 20090101
  7. ZECLAR [Concomitant]
     Dates: start: 20081201

REACTIONS (2)
  - PERIPHERAL SENSORIMOTOR NEUROPATHY [None]
  - T-CELL LYMPHOMA STAGE IV [None]
